FAERS Safety Report 7729531-3 (Version None)
Quarter: 2011Q3

REPORT INFORMATION
  Report Type: 
  Country: None (occurrence: None)
  Receive Date: 20110817
  Receipt Date: 20110427
  Transmission Date: 20111222
  Serious: Yes (Hospitalization, Other)
  Sender: FDA-Public Use
  Company Number: 201110355

PATIENT
  Sex: Male

DRUGS (1)
  1. LIORESAL [Suspect]
     Indication: MUSCLE SPASTICITY
     Dosage: 99.1 MCG, DAILY, NITRATHECAL
     Route: 037

REACTIONS (3)
  - UNRESPONSIVE TO STIMULI [None]
  - INTENSIVE CARE [None]
  - OVERDOSE [None]
